FAERS Safety Report 5400706-1 (Version None)
Quarter: 2007Q3

REPORT INFORMATION
  Report Type: 
  Country: None (occurrence: None)
  Receive Date: 20070725
  Receipt Date: 20070711
  Transmission Date: 20080115
  Serious: Yes (Hospitalization)
  Sender: FDA-Public Use
  Company Number: TCI2007A03297

PATIENT
  Age: 65 Year
  Sex: Male

DRUGS (10)
  1. ACTOS [Suspect]
     Indication: TYPE 2 DIABETES MELLITUS
     Dosage: 15 MG (15 MG, 1 IN 1 D) PER ORAL
     Route: 048
     Dates: start: 20070630, end: 20070703
  2. BASEN (VOGLIBOSE) [Concomitant]
  3. LASIX [Concomitant]
  4. ALDACTONE [Concomitant]
  5. DIGOXIN [Concomitant]
  6. MICARDIS [Concomitant]
  7. BIOFERMIN (LACTOBACILLUS ACIDOPHILUS, BACILLUS SUBTILIS, STREPTOCOCCUS [Concomitant]
  8. TENORMIN [Concomitant]
  9. DISOPYRAMIDE [Concomitant]
  10. TAMSULOSIN HCL [Concomitant]

REACTIONS (7)
  - CARDIAC FAILURE [None]
  - CONDITION AGGRAVATED [None]
  - FLUID RETENTION [None]
  - PERICARDIAL EFFUSION [None]
  - PLEURAL EFFUSION [None]
  - URINE OUTPUT INCREASED [None]
  - WEIGHT INCREASED [None]
